FAERS Safety Report 25425182 (Version 1)
Quarter: 2025Q2

REPORT INFORMATION
  Report Type: Report from Study
  Country: US (occurrence: US)
  Receive Date: 20250611
  Receipt Date: 20250611
  Transmission Date: 20250716
  Serious: Yes (Hospitalization)
  Sender: EISAI
  Company Number: US-Eisai-EC-2025-190873

PATIENT
  Age: 66 Year
  Sex: Female

DRUGS (4)
  1. LENVIMA [Suspect]
     Active Substance: LENVATINIB
     Indication: Endometrial cancer
     Dates: start: 20240117, end: 202402
  2. LENVIMA [Suspect]
     Active Substance: LENVATINIB
     Dates: start: 20250307, end: 20250318
  3. LENVIMA [Suspect]
     Active Substance: LENVATINIB
     Dates: start: 20250326, end: 20250508
  4. KEYTRUDA [Concomitant]
     Active Substance: PEMBROLIZUMAB
     Indication: Endometrial cancer

REACTIONS (1)
  - Heart rate increased [Not Recovered/Not Resolved]

NARRATIVE: CASE EVENT DATE: 20250508
